FAERS Safety Report 23180836 (Version 1)
Quarter: 2023Q4

REPORT INFORMATION
  Report Type: Spontaneous
  Country: CN (occurrence: CN)
  Receive Date: 20231114
  Receipt Date: 20231114
  Transmission Date: 20240110
  Serious: Yes (Other)
  Sender: FDA-Public Use
  Company Number: None

PATIENT
  Age: 59 Year
  Sex: Female
  Weight: 71 kg

DRUGS (6)
  1. CYCLOPHOSPHAMIDE [Suspect]
     Active Substance: CYCLOPHOSPHAMIDE
     Indication: Diffuse large B-cell lymphoma
     Dosage: 0.4 G, ONE TIME IN ONE DAY, DILUTED WITH 250 ML OF 0.9% SODIUM CHLORIDE, GROUP SOLUTION, THIRD COURS
     Route: 041
     Dates: start: 20231020, end: 20231020
  2. SODIUM CHLORIDE [Suspect]
     Active Substance: SODIUM CHLORIDE
     Indication: Medication dilution
     Dosage: 250 ML, ONE TIME IN ONE DAY, USED TO DILUTE 0.4 G CYCLOPHOSPHAMIDE, GROUP SOLUTION, THIRD COURSE
     Route: 041
     Dates: start: 20231020, end: 20231020
  3. SODIUM CHLORIDE [Suspect]
     Active Substance: SODIUM CHLORIDE
     Dosage: 250 ML, ONE TIME IN ONE DAY, USED TO DILUTE 2 MG VINCRISTINE SULFATE, GROUP SOLUTION, THIRD COURSE
     Route: 041
     Dates: start: 20231020, end: 20231020
  4. SODIUM CHLORIDE [Suspect]
     Active Substance: SODIUM CHLORIDE
     Dosage: 100 ML, ONE TIME IN ONE DAY, USED TO DILUTE 30 MG EPIRUBICIN HYDROCHLORIDE, GROUP SOLUTION, THIRD CO
     Route: 041
     Dates: start: 20231020, end: 20231020
  5. VINCRISTINE SULFATE [Suspect]
     Active Substance: VINCRISTINE SULFATE
     Indication: Diffuse large B-cell lymphoma
     Dosage: 2 MG, ONE TIME IN ONE DAY, DILUTED WITH 250 ML OF 0.9% SODIUM CHLORIDE, GROUP SOLUTION, THIRD COURSE
     Route: 041
     Dates: start: 20231020, end: 20231020
  6. EPIRUBICIN HYDROCHLORIDE [Suspect]
     Active Substance: EPIRUBICIN HYDROCHLORIDE
     Indication: Diffuse large B-cell lymphoma
     Dosage: 30 MG, ONE TIME IN ONE DAY, DILUTED WITH 100 ML OF 0.9% SODIUM CHLORIDE, GROUP SOLUTION, THIRD COURS
     Route: 041
     Dates: start: 20231020, end: 20231020

REACTIONS (3)
  - Peripheral nerve palsy [Recovering/Resolving]
  - Paralysis [Recovering/Resolving]
  - Hypoaesthesia [Recovering/Resolving]

NARRATIVE: CASE EVENT DATE: 20231021
